FAERS Safety Report 6308779-9 (Version None)
Quarter: 2009Q3

REPORT INFORMATION
  Report Type: 
  Country: None (occurrence: None)
  Receive Date: 20090813
  Receipt Date: 20080616
  Transmission Date: 20100115
  Serious: No
  Sender: FDA-Public Use
  Company Number: US-ALLERGAN-0807334US

PATIENT
  Age: 59 Year
  Sex: Female

DRUGS (7)
  1. COMBIGAN [Suspect]
     Indication: INTRAOCULAR PRESSURE INCREASED
     Dosage: 1 GTT, BID
     Route: 047
     Dates: start: 20080401
  2. TEGRETOL [Concomitant]
  3. TRIAM GCPZ [Concomitant]
  4. PRAVACHOL [Concomitant]
  5. TOPROL-XL [Concomitant]
  6. CALCIUM [Concomitant]
  7. SYSTANE [Concomitant]

REACTIONS (1)
  - PHOTOPHOBIA [None]
